FAERS Safety Report 22996886 (Version 2)
Quarter: 2023Q4

REPORT INFORMATION
  Report Type: Spontaneous
  Country: US (occurrence: US)
  Receive Date: 20230928
  Receipt Date: 20231114
  Transmission Date: 20240110
  Serious: Yes (Hospitalization)
  Sender: FDA-Public Use
  Company Number: US-SA-SAC20230927000285

PATIENT
  Age: 2 Year
  Sex: Male

DRUGS (1)
  1. DUPIXENT [Suspect]
     Active Substance: DUPILUMAB
     Indication: Eczema
     Dosage: 200 MG, Q4W
     Route: 058
     Dates: start: 20230903

REACTIONS (9)
  - Staphylococcal infection [Unknown]
  - Eczema [Recovered/Resolved]
  - Affective disorder [Unknown]
  - Dermatitis [Unknown]
  - Abnormal behaviour [Unknown]
  - Insomnia [Unknown]
  - Eczema [Unknown]
  - Therapeutic response shortened [Unknown]
  - Product storage error [Unknown]

NARRATIVE: CASE EVENT DATE: 20230101
